FAERS Safety Report 18532385 (Version 1)
Quarter: 2020Q4

REPORT INFORMATION
  Report Type: Spontaneous
  Country: FR (occurrence: FR)
  Receive Date: 20201123
  Receipt Date: 20201123
  Transmission Date: 20210114
  Serious: Yes (Hospitalization)
  Sender: FDA-Public Use
  Company Number: FR-TEVA-2020-FR-1850271

PATIENT
  Age: 93 Year
  Sex: Female

DRUGS (2)
  1. AMIODARONE [Suspect]
     Active Substance: AMIODARONE
     Indication: ATRIAL FIBRILLATION
     Dosage: 200MILLIGRAM
     Route: 048
     Dates: start: 202005, end: 20200812
  2. HYTACAND 16 MG/12,5 MG, COMPRIME [Suspect]
     Active Substance: CANDESARTAN CILEXETIL\HYDROCHLOROTHIAZIDE
     Indication: ARRHYTHMIA
     Dosage: 1DOSAGEFORM:WITH LEFT SCIATICA
     Route: 048
     Dates: start: 202005, end: 20200811

REACTIONS (2)
  - Hyponatraemia [Recovered/Resolved]
  - Vertigo [Recovered/Resolved]

NARRATIVE: CASE EVENT DATE: 20200806
